FAERS Safety Report 6648493-3 (Version None)
Quarter: 2010Q1

REPORT INFORMATION
  Report Type: 
  Country: None (occurrence: None)
  Receive Date: 20100324
  Receipt Date: 20100317
  Transmission Date: 20100710
  Serious: Yes (Hospitalization)
  Sender: FDA-Public Use
  Company Number: US-BAYER-201016978NA

PATIENT
  Sex: Female

DRUGS (1)
  1. BETASERON [Suspect]
     Dosage: UNKNWN DOSING
     Route: 058

REACTIONS (1)
  - HOSPITALISATION [None]
